FAERS Safety Report 19289250 (Version 2)
Quarter: 2021Q2

REPORT INFORMATION
  Report Type: Spontaneous
  Country: US (occurrence: US)
  Receive Date: 20210521
  Receipt Date: 20210617
  Transmission Date: 20210717
  Serious: Yes (Hospitalization, Other)
  Sender: FDA-Public Use
  Company Number: US-SA-2021SA166704

PATIENT
  Age: 28 Year
  Sex: Female

DRUGS (1)
  1. DUPIXENT [Suspect]
     Active Substance: DUPILUMAB
     Indication: ASTHMA
     Dosage: 300 MG, QOW
     Route: 058
     Dates: start: 20190322

REACTIONS (3)
  - Product use issue [Unknown]
  - Coeliac disease [Unknown]
  - Medical procedure [Unknown]

NARRATIVE: CASE EVENT DATE: 20190322
